FAERS Safety Report 8757632 (Version 1)
Quarter: 2012Q4

REPORT INFORMATION
  Report Type: 
  Country: US (occurrence: US)
  Receive Date: 20120828
  Receipt Date: 20120828
  Transmission Date: 20130627
  Serious: Yes (Hospitalization)
  Sender: FDA-Public Use
  Company Number: PHHY2012US071969

PATIENT
  Age: 58 Year
  Sex: Female

DRUGS (6)
  1. CICLOSPORIN [Suspect]
     Indication: PYODERMA GANGRENOSUM
     Dosage: 400 mg, QD
     Route: 048
  2. CICLOSPORIN [Suspect]
     Dosage: 200 mg, QD
     Route: 048
  3. CICLOSPORIN [Suspect]
     Dosage: 300 mg, QD
     Route: 048
  4. PREDNISONE [Suspect]
     Indication: PYODERMA GANGRENOSUM
     Dosage: 60 mg, QD
  5. PREDNISONE [Suspect]
     Dosage: 100 mg, QD
  6. PREDNISONE [Suspect]
     Dosage: 50 mg, QD

REACTIONS (10)
  - Myocardial infarction [Recovering/Resolving]
  - Pulmonary embolism [Recovering/Resolving]
  - Escherichia sepsis [Recovering/Resolving]
  - Hypotension [Recovering/Resolving]
  - Pyoderma gangrenosum [Recovering/Resolving]
  - Pain [Recovering/Resolving]
  - Ulcer [Recovering/Resolving]
  - Induration [Recovering/Resolving]
  - Erythema [Recovering/Resolving]
  - Disease progression [Recovering/Resolving]
